FAERS Safety Report 4503898-1 (Version None)
Quarter: 2004Q4

REPORT INFORMATION
  Report Type: 
  Country: None (occurrence: None)
  Receive Date: 20041115
  Receipt Date: 20041109
  Transmission Date: 20050328
  Serious: Yes (Disabling)
  Sender: FDA-Public Use
  Company Number: A044-002-005301

PATIENT
  Age: 84 Year
  Sex: Female
  Weight: 57 kg

DRUGS (4)
  1. ARICEPT [Suspect]
     Indication: SENILE DEMENTIA
     Dosage: 1 DOSAGE FORMS, 1 IN 1 D, ORAL; SUMMER
     Route: 048
     Dates: start: 20030101, end: 20041001
  2. GODAMED          (ACETYLSALICYLIC ACID) [Concomitant]
  3. VITAMIN E [Concomitant]
  4. CALCIUM /VITAMIN D         (CALCIUM WITH VITAMIN D) [Concomitant]

REACTIONS (1)
  - PSORIASIS [None]
